FAERS Safety Report 6706952-9 (Version None)
Quarter: 2010Q2

REPORT INFORMATION
  Report Type: 
  Country: None (occurrence: None)
  Receive Date: 20100430
  Receipt Date: 20100430
  Transmission Date: 20101027
  Serious: No
  Sender: FDA-Public Use
  Company Number: None

PATIENT
  Sex: Female

DRUGS (1)
  1. BETASERON [Suspect]
     Indication: MULTIPLE SCLEROSIS
     Dosage: 1ML QOD SQ, 3-4 MONTHS APPROX.
     Route: 058

REACTIONS (2)
  - INFLUENZA LIKE ILLNESS [None]
  - INJECTION SITE PAIN [None]
